FAERS Safety Report 5893086-9 (Version None)
Quarter: 2008Q3

REPORT INFORMATION
  Report Type: 
  Country: None (occurrence: None)
  Receive Date: 20080923
  Receipt Date: 20071108
  Transmission Date: 20090109
  Serious: Yes (Hospitalization)
  Sender: FDA-Public Use
  Company Number: IT-ROCHE-571142

PATIENT
  Sex: Female

DRUGS (2)
  1. RIBAVIRIN [Suspect]
     Dosage: DOSE REPORTED AS 600.
     Route: 065
     Dates: start: 20061012, end: 20070615
  2. PEG-INTRON [Suspect]
     Dosage: DOSE AND STRENGTH REPORTED AS 80.
     Route: 065
     Dates: start: 20061012, end: 20070615

REACTIONS (4)
  - ANTINUCLEAR ANTIBODY POSITIVE [None]
  - ARTHRALGIA [None]
  - CRYOGLOBULINS PRESENT [None]
  - PYREXIA [None]
